FAERS Safety Report 11010381 (Version 3)
Quarter: 2015Q2

REPORT INFORMATION
  Report Type: Report from Study
  Country: NL (occurrence: NL)
  Receive Date: 20150410
  Receipt Date: 20150624
  Transmission Date: 20150821
  Serious: Yes (Death, Life-Threatening, Hospitalization, Other)
  Sender: FDA-Public Use
  Company Number: NL-GLAXOSMITHKLINE-NL2015GSK046769

PATIENT
  Age: 70 Year
  Sex: Female
  Weight: 99 kg

DRUGS (1)
  1. PAZOPANIB [Suspect]
     Active Substance: PAZOPANIB
     Indication: ENDOMETRIAL CANCER
     Dosage: 800 MG, QD
     Dates: start: 20150324, end: 20150406

REACTIONS (1)
  - Ileal perforation [Fatal]

NARRATIVE: CASE EVENT DATE: 20150403
